FAERS Safety Report 8446093 (Version 2)
Quarter: 2014Q1

REPORT INFORMATION
  Report Type: Spontaneous
  Country: US (occurrence: US)
  Receive Date: 20120307
  Receipt Date: 20140122
  Transmission Date: 20141002
  Serious: No
  Sender: FDA-Public Use
  Company Number: US-ASTRAZENECA-2011SE30004

PATIENT
  Age: 66 Year
  Sex: Female
  Weight: 40.4 kg

DRUGS (3)
  1. ZOMIG [Suspect]
     Indication: MIGRAINE
     Dosage: 1 TABLET (2.5MG) ONCE, IF HEADACHE RETURNS, MAY BE REPEATED IN 2 HOURS
     Route: 048
     Dates: start: 2003
  2. ESTRATEST HS [Concomitant]
     Dosage: 0.625-1.25, 1 TABLET ONCE A DAY
     Route: 048
  3. NASONEX [Concomitant]
     Dosage: 50 MCG 2 SPRAYS EVERY DAY IN EACH NOSTRIL
     Route: 045

REACTIONS (3)
  - Headache [Unknown]
  - Cerumen impaction [Unknown]
  - Rhinitis allergic [Unknown]
